FAERS Safety Report 5058096-2 (Version None)
Quarter: 2006Q3

REPORT INFORMATION
  Report Type: 
  Country: None (occurrence: None)
  Receive Date: 20060721
  Receipt Date: 20060313
  Transmission Date: 20061208
  Serious: Yes (Other)
  Sender: FDA-Public Use
  Company Number: 20060303419

PATIENT
  Age: 44 Year
  Sex: Female

DRUGS (5)
  1. WELLBUTRIN SR [Suspect]
     Indication: SMOKING CESSATION THERAPY
     Dosage: 150MG TWICE PER DAY
     Route: 048
     Dates: start: 20060225, end: 20060307
  2. SIMPLY SLEEP [Suspect]
     Indication: SLEEP DISORDER
     Dosage: 50MG PER DAY
     Route: 048
     Dates: start: 20060301, end: 20060301
  3. LEVOXYL [Concomitant]
  4. NEXIUM [Concomitant]
  5. ASPIRIN [Concomitant]

REACTIONS (8)
  - AGITATION [None]
  - DISORIENTATION [None]
  - FEELING JITTERY [None]
  - HEADACHE [None]
  - IMPAIRED DRIVING ABILITY [None]
  - INSOMNIA [None]
  - LOSS OF CONSCIOUSNESS [None]
  - THINKING ABNORMAL [None]
